FAERS Safety Report 8602207-6 (Version None)
Quarter: 2012Q3

REPORT INFORMATION
  Report Type: 
  Country: None (occurrence: None)
  Receive Date: 20120817
  Receipt Date: 20120809
  Transmission Date: 20120928
  Serious: Yes (Hospitalization)
  Sender: FDA-Public Use
  Company Number: FR-PFIZER INC-2011200552

PATIENT
  Age: 83 Year
  Sex: Male

DRUGS (11)
  1. SINTROM [Concomitant]
     Dosage: UNK
  2. GLUCOPHAGE [Concomitant]
     Dosage: UNK
  3. ASPIRIN [Concomitant]
     Dosage: UNK
  4. PRAZEPAM [Concomitant]
     Dosage: UNK
  5. SPIRIVA [Concomitant]
     Dosage: UNK
  6. RAMIPRIL [Concomitant]
     Dosage: UNK
  7. BISOPROLOL FUMARATE [Concomitant]
     Dosage: UNK
  8. LASIX [Suspect]
     Dosage: 20 MG, DAILY
     Route: 048
     Dates: start: 20110712
  9. PANTOPRAZOLE [Suspect]
     Dosage: 20 MG, DAILY
     Route: 048
     Dates: end: 20110706
  10. LASIX [Suspect]
     Dosage: 40 MG, DAILY
     Route: 048
     Dates: end: 20110711
  11. PRAVASTATIN [Concomitant]
     Dosage: UNK

REACTIONS (1)
  - INAPPROPRIATE ANTIDIURETIC HORMONE SECRETION [None]
